FAERS Safety Report 15271691 (Version 1)
Quarter: 2018Q3

REPORT INFORMATION
  Report Type: Spontaneous
  Country: CA (occurrence: CA)
  Receive Date: 20180813
  Receipt Date: 20180813
  Transmission Date: 20181010
  Serious: Yes (Other)
  Sender: FDA-Public Use
  Company Number: CA-B.I. PHARMACEUTICALS,INC./RIDGEFIELD-2018-BI-040326

PATIENT
  Age: 67 Year
  Sex: Male
  Weight: 62 kg

DRUGS (1)
  1. VIRAMUNE [Suspect]
     Active Substance: NEVIRAPINE
     Indication: HIV INFECTION
     Route: 048

REACTIONS (2)
  - Product substitution issue [Recovered/Resolved]
  - Oral administration complication [Recovered/Resolved]
